FAERS Safety Report 18207854 (Version 2)
Quarter: 2021Q3

REPORT INFORMATION
  Report Type: Spontaneous
  Country: US (occurrence: US)
  Receive Date: 20200828
  Receipt Date: 20210819
  Transmission Date: 20211014
  Serious: Yes (Other)
  Sender: FDA-Public Use
  Company Number: US-PFIZER INC-2020331939

PATIENT
  Age: 58 Year
  Sex: Female

DRUGS (2)
  1. NEOSPORIN + BURN RELIEF [Concomitant]
     Dosage: UNK
  2. TACROLIMUS. [Suspect]
     Active Substance: TACROLIMUS
     Dosage: UNK

REACTIONS (7)
  - Dysphagia [Unknown]
  - Cyanosis [Unknown]
  - Burning sensation [Unknown]
  - Vertigo [Unknown]
  - Vomiting [Unknown]
  - Anaphylactic reaction [Unknown]
  - Abdominal pain upper [Unknown]
